FAERS Safety Report 9999179 (Version 1)
Quarter: 2014Q1

REPORT INFORMATION
  Report Type: Spontaneous
  Country: US (occurrence: None)
  Receive Date: 20140311
  Receipt Date: 20140311
  Transmission Date: 20141002
  Serious: Yes (Disabling, Other)
  Sender: FDA-Public Use
  Company Number: None

PATIENT
  Age: 59 Year
  Sex: Female
  Weight: 72.12 kg

DRUGS (1)
  1. NASONEX [Suspect]
     Indication: RHINITIS ALLERGIC
     Dosage: 3 TO 4 DAYS AND COUNTING?I  HAVE ONLY USED  IT ONCE A DAY.
     Route: 055

REACTIONS (6)
  - Oropharyngeal pain [None]
  - Eustachian tube disorder [None]
  - Pharyngeal oedema [None]
  - Dysphonia [None]
  - Candida infection [None]
  - Erythema [None]
